FAERS Safety Report 17301382 (Version 4)
Quarter: 2020Q1

REPORT INFORMATION
  Report Type: Report from Study
  Country: None (occurrence: US)
  Receive Date: 20200122
  Receipt Date: 20200323
  Transmission Date: 20200409
  Serious: Yes (Hospitalization, Other)
  Sender: FDA-Public Use
  Company Number: US-ABBVIE-19K-163-2872503-00

PATIENT
  Age: 75 Year
  Sex: Female
  Weight: 79 kg

DRUGS (10)
  1. GLIMEPIRIDE. [Suspect]
     Active Substance: GLIMEPIRIDE
     Indication: DIABETES MELLITUS
     Route: 065
  2. HUMIRA [Suspect]
     Active Substance: ADALIMUMAB
     Indication: HIDRADENITIS
     Route: 058
     Dates: start: 201704, end: 201912
  3. HUMIRA [Suspect]
     Active Substance: ADALIMUMAB
     Route: 058
  4. ALLOPURINOL. [Concomitant]
     Active Substance: ALLOPURINOL
     Indication: RENAL LITHIASIS PROPHYLAXIS
  5. HUMIRA [Suspect]
     Active Substance: ADALIMUMAB
     Indication: HIDRADENITIS
     Route: 058
     Dates: start: 201912
  6. METOPROLOL TARTRATE. [Concomitant]
     Active Substance: METOPROLOL TARTRATE
     Indication: CARDIAC DISORDER
  7. FENOFIBRATE. [Concomitant]
     Active Substance: FENOFIBRATE
     Indication: PRODUCT USED FOR UNKNOWN INDICATION
  8. FLECAINIDE [Concomitant]
     Active Substance: FLECAINIDE
     Indication: CARDIAC DISORDER
  9. ELIQUIS [Concomitant]
     Active Substance: APIXABAN
     Indication: ANTICOAGULANT THERAPY
  10. ALLOPURINOL. [Concomitant]
     Active Substance: ALLOPURINOL
     Indication: RENAL IMPAIRMENT

REACTIONS (21)
  - Culture urine positive [Recovered/Resolved]
  - Dehydration [Recovered/Resolved]
  - Dizziness [Unknown]
  - Immunodeficiency [Unknown]
  - Road traffic accident [Unknown]
  - Atrial fibrillation [Not Recovered/Not Resolved]
  - Joint swelling [Recovered/Resolved]
  - Dizziness [Recovered/Resolved]
  - Syncope [Unknown]
  - Heart rate decreased [Unknown]
  - Urinary tract infection [Recovered/Resolved]
  - Thrombosis [Unknown]
  - Unevaluable event [Unknown]
  - Fall [Unknown]
  - Loss of consciousness [Recovered/Resolved]
  - Fear [Recovered/Resolved]
  - Blood glucose decreased [Recovered/Resolved]
  - Fatigue [Unknown]
  - Depressed mood [Unknown]
  - Renal failure [Not Recovered/Not Resolved]
  - Peripheral swelling [Recovered/Resolved]

NARRATIVE: CASE EVENT DATE: 201904
